FAERS Safety Report 6779848-4 (Version None)
Quarter: 2010Q2

REPORT INFORMATION
  Report Type: 
  Country: None (occurrence: None)
  Receive Date: 20100618
  Receipt Date: 20100610
  Transmission Date: 20101027
  Serious: Yes (Other)
  Sender: FDA-Public Use
  Company Number: AU-PFIZER INC-2010073002

PATIENT
  Age: 50 Year
  Sex: Male

DRUGS (1)
  1. CADUET [Suspect]
     Dosage: 5/20

REACTIONS (2)
  - BLOOD POTASSIUM DECREASED [None]
  - BLOOD PRESSURE INCREASED [None]
